FAERS Safety Report 9685038 (Version 2)
Quarter: 2013Q4

REPORT INFORMATION
  Report Type: Spontaneous
  Country: BR (occurrence: BR)
  Receive Date: 20131113
  Receipt Date: 20131210
  Transmission Date: 20140711
  Serious: Yes (Other)
  Sender: FDA-Public Use
  Company Number: BR-JNJFOC-20131100723

PATIENT
  Age: 91 Year
  Sex: Female
  Weight: 47 kg

DRUGS (5)
  1. TYLEX [Suspect]
     Indication: BACK PAIN
     Route: 065
     Dates: start: 20131031, end: 20131031
  2. PARACETAMOL [Concomitant]
     Indication: PAIN
     Route: 065
  3. OMEPRAZOLE [Concomitant]
     Indication: GASTROINTESTINAL DISORDER THERAPY
     Route: 065
  4. ENALAPRIL [Concomitant]
     Indication: CARDIAC DISORDER
     Route: 065
  5. PRADAXA [Concomitant]
     Indication: ANTICOAGULANT THERAPY
     Route: 065

REACTIONS (5)
  - Depressed level of consciousness [Recovering/Resolving]
  - Abdominal pain [Recovering/Resolving]
  - Nausea [Not Recovered/Not Resolved]
  - Diarrhoea [Not Recovered/Not Resolved]
  - Medication error [Recovered/Resolved]
